FAERS Safety Report 8415612-8 (Version None)
Quarter: 2012Q2

REPORT INFORMATION
  Report Type: 
  Country: None (occurrence: None)
  Receive Date: 20120606
  Receipt Date: 20120531
  Transmission Date: 20120825
  Serious: Yes (Death, Hospitalization)
  Sender: FDA-Public Use
  Company Number: MX-BRISTOL-MYERS SQUIBB COMPANY-16170524

PATIENT
  Age: 43 Year
  Sex: Female
  Weight: 33 kg

DRUGS (3)
  1. CISPLATIN [Suspect]
     Indication: HEAD AND NECK CANCER
     Dosage: DAY 1 EVERY CYCLE,LAST DOSE ON 23SEP11
     Route: 042
     Dates: start: 20110923
  2. ERBITUX [Suspect]
     Indication: HEAD AND NECK CANCER
     Dosage: 23SEP11=1D(D1OFCYCLE1ONLY),30SEP11-ONG 250MG/M2(297MG)(ON DAY 1,8+15 EVERYCYCLE),LAST DOSE ON5OCT11
     Route: 042
     Dates: start: 20110923
  3. FLUOROURACIL [Suspect]
     Indication: HEAD AND NECK CANCER
     Dosage: ON DAY 1 -4,LAST DOSE ON 26SEP11
     Route: 042
     Dates: start: 20110923

REACTIONS (5)
  - SEPTIC SHOCK [None]
  - NEUTROPENIA [None]
  - PNEUMONIA [None]
  - THROMBOCYTOPENIA [None]
  - RESPIRATORY FAILURE [None]
